FAERS Safety Report 22595364 (Version 1)
Quarter: 2023Q2

REPORT INFORMATION
  Report Type: Spontaneous
  Country: US (occurrence: US)
  Receive Date: 20230613
  Receipt Date: 20230613
  Transmission Date: 20230721
  Serious: No
  Sender: FDA-Public Use
  Company Number: US-TEVA-2023-US-2893713

PATIENT
  Age: 50 Year
  Sex: Female

DRUGS (3)
  1. PROVIGIL [Suspect]
     Active Substance: MODAFINIL
     Indication: Hypersomnia
     Route: 065
  2. ADDERALL [Suspect]
     Active Substance: AMPHETAMINE ASPARTATE\AMPHETAMINE SULFATE\DEXTROAMPHETAMINE SACCHARATE\DEXTROAMPHETAMINE SULFATE
     Indication: Product used for unknown indication
     Dosage: 60 MILLIGRAM DAILY; AT 7:00 A.M, AGAIN BETWEEN 10:00 A.M. AND 12:00 P.M, WITH A FINAL DOSE BETWEEN 2
     Route: 065
  3. SUNOSI [Suspect]
     Active Substance: SOLRIAMFETOL
     Indication: Product used for unknown indication
     Dosage: 150 MILLIGRAM DAILY; 7.00 AM
     Route: 065

REACTIONS (2)
  - Fatigue [Unknown]
  - Drug ineffective [Unknown]
